FAERS Safety Report 5482789-6 (Version None)
Quarter: 2007Q4

REPORT INFORMATION
  Report Type: 
  Country: None (occurrence: None)
  Receive Date: 20071011
  Receipt Date: 20071005
  Transmission Date: 20080405
  Serious: Yes (Death)
  Sender: FDA-Public Use
  Company Number: US-PFIZER INC-2007084086

PATIENT
  Sex: Female
  Weight: 60 kg

DRUGS (12)
  1. CAMPTOSAR [Suspect]
     Indication: BREAST CANCER
  2. ETOPOSIDE [Suspect]
     Indication: BREAST CANCER
     Dosage: DAILY DOSE:100MG-FREQ:CYCLIC: EVERY DAY FOR 7 DAYS
     Route: 048
  3. ETOPOSIDE [Suspect]
     Dosage: DAILY DOSE:50MG-FREQ:CYCLIC: EVERY DAY FOR 7 DAYS
     Route: 048
  4. THYROID TAB [Concomitant]
  5. ALL OTHER THERAPEUTIC PRODUCTS [Concomitant]
  6. ASCORBIC ACID [Concomitant]
  7. TURMERIC [Concomitant]
  8. FISH OIL [Concomitant]
  9. TEA, GREEN [Concomitant]
  10. ZOFRAN [Concomitant]
  11. MILK THISTLE [Concomitant]
  12. SAW PALMETTO [Concomitant]

REACTIONS (1)
  - DEATH [None]
